FAERS Safety Report 8849261 (Version 1)
Quarter: 2012Q4

REPORT INFORMATION
  Report Type: Spontaneous
  Country: US (occurrence: None)
  Receive Date: 20121017
  Receipt Date: 20121017
  Transmission Date: 20130627
  Serious: Yes (Death, Other)
  Sender: FDA-Public Use
  Company Number: 2012MA011979

PATIENT
  Age: 24 Year
  Sex: Female

DRUGS (4)
  1. CITALOPRAM HYDROBROMIDE [Suspect]
     Indication: INTENTIONAL OVERDOSE
     Dosage: 1.8 g; 1x; po
     Route: 048
  2. BUPROPION HYDROCHLORIDE [Suspect]
     Indication: INTENTIONAL OVERDOSE
     Dosage: 13.5 G; 1X; PO
     Route: 048
  3. CLONAZEPAM [Suspect]
     Indication: INTENTIONAL OVERDOSE
     Dosage: 90 MG; 1X; PO
     Route: 048
  4. TRAZODONE [Suspect]
     Indication: INTENTIONAL OVERDOSE
     Dosage: 4.5 G; 1X; PO
     Route: 048

REACTIONS (18)
  - Cardiotoxicity [None]
  - Unresponsive to stimuli [None]
  - Oxygen saturation decreased [None]
  - Body temperature decreased [None]
  - Miosis [None]
  - Areflexia [None]
  - Peripheral coldness [None]
  - Flushing [None]
  - Hypotension [None]
  - Electrocardiogram QT prolonged [None]
  - Blood ethanol increased [None]
  - Grand mal convulsion [None]
  - Electrocardiogram QRS complex prolonged [None]
  - Pupil fixed [None]
  - Corneal reflex decreased [None]
  - Myoclonus [None]
  - Ventricular tachycardia [None]
  - Overdose [None]
